FAERS Safety Report 6001188-1 (Version None)
Quarter: 2008Q4

REPORT INFORMATION
  Report Type: 
  Country: None (occurrence: None)
  Receive Date: 20081215
  Receipt Date: 20081202
  Transmission Date: 20090506
  Serious: Yes (Other)
  Sender: FDA-Public Use
  Company Number: FR-ELI_LILLY_AND_COMPANY-FR200809002547

PATIENT
  Sex: Male

DRUGS (3)
  1. CYMBALTA [Suspect]
     Indication: DEPRESSION
     Dosage: 60 MG, DAILY (1/D)
     Route: 048
     Dates: start: 20080103, end: 20080701
  2. LEVOTHYROX [Concomitant]
     Indication: HYPOTHYROIDISM
     Dosage: UNK, UNKNOWN
     Route: 048
     Dates: start: 20060401
  3. KARDEGIC /00002703/ [Concomitant]
     Dosage: UNK, UNKNOWN
     Route: 048
     Dates: start: 20050101

REACTIONS (2)
  - BLOOD CHOLESTEROL INCREASED [None]
  - CHOLESTASIS [None]
